FAERS Safety Report 19439492 (Version 1)
Quarter: 2021Q2

REPORT INFORMATION
  Report Type: Report from Study
  Country: GB (occurrence: GB)
  Receive Date: 20210618
  Receipt Date: 20210618
  Transmission Date: 20210717
  Serious: Yes (Other)
  Sender: FDA-Public Use
  Company Number: GB-CELLTRION INC.-2021GB008230

PATIENT

DRUGS (24)
  1. TAMOXIFEN [Suspect]
     Active Substance: TAMOXIFEN
     Indication: BREAST CANCER METASTATIC
     Dosage: 20 MG, QD
     Route: 048
     Dates: start: 20161010, end: 20190708
  2. DEXAMETHASONE. [Concomitant]
     Active Substance: DEXAMETHASONE
     Indication: HEADACHE
     Dosage: 8 MG, QD (PHARMACEUTICAL DOSE FORM: 245)
     Route: 048
     Dates: start: 201909, end: 20191010
  3. OMEPRAZOLE. [Concomitant]
     Active Substance: OMEPRAZOLE
     Indication: METASTASES TO CENTRAL NERVOUS SYSTEM
     Dosage: 40 MG, QD (PHARMACEUTICAL DOSE FORM: 245)
     Route: 048
     Dates: start: 201909
  4. LETROZOLE. [Suspect]
     Active Substance: LETROZOLE
     Indication: BREAST CANCER METASTATIC
     Dosage: 2.5 MICROGRAM, QD
     Route: 048
     Dates: start: 20190709
  5. PERTUZUMAB. [Suspect]
     Active Substance: PERTUZUMAB
     Dosage: 420 MG, EVERY 3 WEEKS, MAINTENANCE DOSE (PHARMACEUTICAL DOSE FORM: 230)
     Route: 042
     Dates: start: 20160516
  6. TRASTUZUMAB (UNKNOWN) [Suspect]
     Active Substance: TRASTUZUMAB
     Indication: BREAST CANCER METASTATIC
     Dosage: 600 MG, EVERY 3 WEEKS
     Route: 058
     Dates: start: 20160425
  7. DOCETAXEL. [Suspect]
     Active Substance: DOCETAXEL
     Indication: BREAST CANCER METASTATIC
     Dosage: 120 MG, 3/WEEK
     Route: 042
     Dates: start: 20160314, end: 20160810
  8. DEXAMETHASONE. [Concomitant]
     Active Substance: DEXAMETHASONE
     Dosage: 1.5 MG, QD (PHARMACEUTICAL DOSE FORM: 245) (CUMULATIVE DOSE TO FIRST REACTION: 540MG)
     Route: 048
     Dates: start: 20191126, end: 20191203
  9. ORAMORPH [Concomitant]
     Active Substance: MORPHINE SULFATE
     Indication: METASTASES TO CENTRAL NERVOUS SYSTEM
     Dosage: UNK, AS NECESSARY
     Route: 048
     Dates: start: 20210311
  10. DEXAMETHASONE. [Concomitant]
     Active Substance: DEXAMETHASONE
     Indication: METASTASES TO CENTRAL NERVOUS SYSTEM
     Dosage: 2 MG, QD (PHARMACEUTICAL DOSE FORM: 245)
     Route: 048
     Dates: start: 20191011, end: 20191125
  11. PARACETAMOL [Concomitant]
     Active Substance: ACETAMINOPHEN
     Indication: MUSCULOSKELETAL PAIN
     Dosage: 1 G, AS NECESSARY (PHARMACEUTICAL DOSE FORM: 245)
     Route: 048
     Dates: start: 20160612
  12. PERTUZUMAB. [Suspect]
     Active Substance: PERTUZUMAB
     Indication: BREAST CANCER METASTATIC
     Dosage: 840 MG, EVERY 3 WEEKS, INITIAL LOADING DOSE (PHARMACEUTICAL DOSE FORM: 230)
     Route: 042
     Dates: start: 20160425, end: 20160425
  13. PERTUZUMAB. [Suspect]
     Active Substance: PERTUZUMAB
     Dosage: 840 MG, EVERY 3 WEEKS, INITIAL LOADING DOSE (PHARMACEUTICAL DOSE FORM: 230)
     Route: 042
     Dates: start: 20160425, end: 20160425
  14. PERTUZUMAB. [Suspect]
     Active Substance: PERTUZUMAB
     Dosage: 420 MG, EVERY 3 WEEKS, MAINTENANCE DOSE (PHARMACEUTICAL DOSE FORM: 230)
     Route: 042
     Dates: start: 20160516
  15. CODEINE [Concomitant]
     Active Substance: CODEINE
     Indication: PHANTOM LIMB SYNDROME
     Dosage: 60 MG, QD (PHARMACEUTICAL DOSE FORM: 245)
     Route: 048
     Dates: start: 20160919
  16. DEXAMETHASONE. [Concomitant]
     Active Substance: DEXAMETHASONE
     Dosage: 1 MG, BID (PHARMACEUTICAL DOSE FORM: 245) (CUMULATIVE DOSE TO FIRST REACTION: 176 MG)
     Route: 048
     Dates: start: 20191204, end: 20191223
  17. LAXIDO [Concomitant]
     Active Substance: POLYETHYLENE GLYCOL 3350\POTASSIUM CHLORIDE\SODIUM BICARBONATE\SODIUM CHLORIDE
     Dosage: UNK, QD
     Route: 048
     Dates: start: 20160627
  18. DEXAMETHASONE. [Concomitant]
     Active Substance: DEXAMETHASONE
     Dosage: 4 MG, QD (PHARMACEUTICAL DOSE FORM: 245) (CUMULATIVE DOSE TO FIRST REACTION: 352)
     Route: 048
     Dates: start: 20210216
  19. DOCUSATE [Concomitant]
     Active Substance: DOCUSATE
     Indication: CONSTIPATION
     Dosage: 100 MG (PHARMACEUTICAL DOSE FORM: 245)
     Route: 048
     Dates: start: 20210226
  20. IBUPROFEN. [Concomitant]
     Active Substance: IBUPROFEN
     Indication: MUSCULOSKELETAL PAIN
     Dosage: 200 MG, AS NECESSARY (PHARMACEUTICAL DOSE FORM: 245)
     Route: 048
     Dates: start: 20160612
  21. AMITRIPTYLINE [Concomitant]
     Active Substance: AMITRIPTYLINE
     Indication: METASTASES TO CENTRAL NERVOUS SYSTEM
     Dosage: 10 MG, QD (PHARMACEUTICAL DOSE FORM: 245)
     Route: 048
     Dates: start: 20210407
  22. BUSCOPAN [Concomitant]
     Active Substance: BUTYLSCOPOLAMINE BROMIDE
     Dosage: 80 MG, QD (PHARMACEUTICAL DOSE FORM: 245)
     Route: 048
     Dates: start: 20160625
  23. DEXAMETHASONE. [Concomitant]
     Active Substance: DEXAMETHASONE
     Dosage: 0.5 MG, BID (PHARMACEUTICAL DOSE FORM: 245) (CUMULATIVE DOSE TO FIRST REACTION: 83 MG)
     Route: 048
     Dates: start: 20191224, end: 202002
  24. DEXAMETHASONE. [Concomitant]
     Active Substance: DEXAMETHASONE
     Dosage: 4 MG, QD (PHARMACEUTICAL DOSE FORM: 245) (CUMULATIVE DOSE TO FIRST REACTION: 648.1667 MG)
     Route: 048
     Dates: start: 20200611

REACTIONS (8)
  - Cellulitis [Unknown]
  - Skin infection [Unknown]
  - Acarodermatitis [Recovered/Resolved]
  - Incorrect route of product administration [Unknown]
  - Constipation [Unknown]
  - Urinary tract infection [Recovered/Resolved]
  - Vision blurred [Not Recovered/Not Resolved]
  - Headache [Not Recovered/Not Resolved]

NARRATIVE: CASE EVENT DATE: 20201120
